FAERS Safety Report 6483289-7 (Version None)
Quarter: 2009Q4

REPORT INFORMATION
  Report Type: 
  Country: None (occurrence: None)
  Receive Date: 20091209
  Receipt Date: 20090914
  Transmission Date: 20100525
  Serious: No
  Sender: FDA-Public Use
  Company Number: US-AMGEN-KDL344603

PATIENT
  Sex: Male

DRUGS (5)
  1. ENBREL [Suspect]
     Indication: PSORIATIC ARTHROPATHY
     Route: 058
     Dates: start: 20090301
  2. LISINOPRIL [Concomitant]
  3. FOLIC ACID [Concomitant]
  4. INDOMETHACIN [Concomitant]
  5. UNSPECIFIED MEDICATION [Concomitant]

REACTIONS (6)
  - INJECTION SITE ERYTHEMA [None]
  - INJECTION SITE PRURITUS [None]
  - INJECTION SITE URTICARIA [None]
  - PRURITUS [None]
  - PSORIATIC ARTHROPATHY [None]
  - URTICARIA [None]
